FAERS Safety Report 6843703-1 (Version None)
Quarter: 2010Q3

REPORT INFORMATION
  Report Type: 
  Country: None (occurrence: None)
  Receive Date: 20100714
  Receipt Date: 20100714
  Transmission Date: 20110219
  Serious: Yes (Hospitalization, Disabling, Other)
  Sender: FDA-Public Use
  Company Number: None

PATIENT
  Age: 41 Year
  Sex: Female
  Weight: 83.9154 kg

DRUGS (1)
  1. YAZ [Suspect]
     Indication: HORMONE LEVEL ABNORMAL
     Dosage: 1 TABLET DAILY PO
     Route: 048
     Dates: start: 20080801, end: 20081130

REACTIONS (1)
  - GALLBLADDER INJURY [None]
